FAERS Safety Report 15170667 (Version 1)
Quarter: 2018Q3

REPORT INFORMATION
  Report Type: Other
  Country: US (occurrence: US)
  Receive Date: 20180720
  Receipt Date: 20180720
  Transmission Date: 20181010
  Serious: Yes (Hospitalization)
  Sender: FDA-Public Use
  Company Number: US-ALCAMI_CORPORATION-USA-POI0581201800002

PATIENT
  Age: 62 Year
  Sex: Male

DRUGS (3)
  1. PREDNISONE. [Concomitant]
     Active Substance: PREDNISONE
     Indication: COLITIS ULCERATIVE
     Dosage: SEVERAL TAPERING COURSES.
  2. LIALDA [Concomitant]
     Active Substance: MESALAMINE
     Indication: COLITIS ULCERATIVE
  3. AZASAN [Suspect]
     Active Substance: AZATHIOPRINE
     Indication: COLITIS ULCERATIVE
     Dates: start: 2016, end: 2016

REACTIONS (13)
  - Dyspnoea [None]
  - Myocarditis [Recovered/Resolved]
  - Myalgia [None]
  - Nausea [None]
  - Chills [None]
  - Tremor [None]
  - Rash maculo-papular [None]
  - Vomiting [None]
  - Cardiac failure chronic [None]
  - Atrial fibrillation [None]
  - Pyrexia [None]
  - Drug ineffective [None]
  - Hypotension [None]

NARRATIVE: CASE EVENT DATE: 201612
